FAERS Safety Report 4582448-8 (Version None)
Quarter: 2005Q1

REPORT INFORMATION
  Report Type: 
  Country: None (occurrence: None)
  Receive Date: 20050125
  Receipt Date: 20041008
  Transmission Date: 20050727
  Serious: No
  Sender: FDA-Public Use
  Company Number: REM_00071_2004

PATIENT
  Age: 65 Year
  Sex: Male
  Weight: 73 kg

DRUGS (16)
  1. REMODULIN [Suspect]
     Indication: PULMONARY HYPERTENSION
     Dosage: 2.5 NG/KG/MIN CONTINOUS SC
     Route: 058
     Dates: start: 20040809
  2. COUMADIN [Concomitant]
  3. DIDROCAL [Concomitant]
  4. B6 [Concomitant]
  5. INH [Concomitant]
  6. IRON [Concomitant]
  7. K-DUR 10 [Concomitant]
  8. FLOVENT [Concomitant]
  9. COMBIVENT [Concomitant]
  10. FUROSEMIDE [Concomitant]
  11. ASPIRIN [Concomitant]
  12. ZOCOR [Concomitant]
  13. NORVASC [Concomitant]
  14. BOSENTAN [Concomitant]
  15. LOSEC [Concomitant]
  16. ALDACTONE [Concomitant]

REACTIONS (4)
  - ERYTHEMA [None]
  - FLUSHING [None]
  - PRURITUS [None]
  - RASH GENERALISED [None]
